FAERS Safety Report 9364888 (Version 1)
Quarter: 2013Q2

REPORT INFORMATION
  Report Type: Spontaneous
  Country: GB (occurrence: GB)
  Receive Date: 20130624
  Receipt Date: 20130624
  Transmission Date: 20140414
  Serious: Yes (Other)
  Sender: FDA-Public Use
  Company Number: GB-GLAXOSMITHKLINE-B0899251A

PATIENT
  Age: 40 Year
  Sex: Male

DRUGS (3)
  1. FLUTICASONE PROPIONATE + SALMETEROL XINAFOATE [Suspect]
     Indication: PRODUCT USED FOR UNKNOWN INDICATION
     Dosage: 2PUFF TWICE PER DAY
     Route: 055
  2. VENTOLIN [Suspect]
     Indication: PRODUCT USED FOR UNKNOWN INDICATION
     Dosage: 1PUFF AS REQUIRED
     Route: 055
  3. MONTELUKAST [Suspect]
     Indication: PRODUCT USED FOR UNKNOWN INDICATION
     Dosage: 10MG AT NIGHT
     Route: 065

REACTIONS (6)
  - Pigment dispersion syndrome [Unknown]
  - Trabeculectomy [Unknown]
  - Blebitis [Unknown]
  - Tenon^s cyst [Unknown]
  - Diplopia [Unknown]
  - Dysaesthesia [Unknown]
